FAERS Safety Report 15931875 (Version 2)
Quarter: 2019Q1

REPORT INFORMATION
  Report Type: Spontaneous
  Country: JP (occurrence: JP)
  Receive Date: 20190207
  Receipt Date: 20190221
  Transmission Date: 20190417
  Serious: Yes (Other)
  Sender: FDA-Public Use
  Company Number: JP-BAYER-2019-022279

PATIENT

DRUGS (2)
  1. BAYASPIRIN 100 MG [Suspect]
     Active Substance: ASPIRIN
     Route: 048
  2. WARFARIN POTASSIUM [Concomitant]
     Active Substance: WARFARIN POTASSIUM

REACTIONS (1)
  - Spinal laminectomy [None]
